FAERS Safety Report 23407555 (Version 2)
Quarter: 2024Q2

REPORT INFORMATION
  Report Type: Spontaneous
  Country: US (occurrence: US)
  Receive Date: 20240117
  Receipt Date: 20240425
  Transmission Date: 20240716
  Serious: No
  Sender: FDA-Public Use
  Company Number: US-Blueprint Medicines Corporation-1959

PATIENT
  Sex: Female

DRUGS (3)
  1. AYVAKIT [Suspect]
     Active Substance: AVAPRITINIB
     Indication: Advanced systemic mastocytosis
     Route: 065
     Dates: start: 20230101
  2. AYVAKIT [Suspect]
     Active Substance: AVAPRITINIB
     Dosage: 25 MG AND 50 MG TO COMPLETE 75 MG
     Route: 065
     Dates: start: 20230101
  3. AYVAKIT [Suspect]
     Active Substance: AVAPRITINIB
     Dosage: 25 MG AND 50 MG TO COMPLETE 75 MG
     Route: 065
     Dates: start: 20230101

REACTIONS (7)
  - Fatigue [Unknown]
  - Insomnia [Unknown]
  - Anxiety [Unknown]
  - Restless legs syndrome [Unknown]
  - White blood cell count abnormal [Unknown]
  - Platelet count abnormal [Unknown]
  - Pain in extremity [Unknown]
